FAERS Safety Report 19592750 (Version 1)
Quarter: 2021Q3

REPORT INFORMATION
  Report Type: Report from Study
  Country: US (occurrence: US)
  Receive Date: 20210722
  Receipt Date: 20210722
  Transmission Date: 20211014
  Serious: No
  Sender: FDA-Public Use
  Company Number: US-AGIOS-2107US03004

PATIENT

DRUGS (1)
  1. TIBSOVO [Suspect]
     Active Substance: IVOSIDENIB
     Dosage: 500 MILLIGRAM (2 TABLETS X 250MG), QD
     Route: 048
     Dates: start: 20191226

REACTIONS (1)
  - Product dose omission issue [Not Recovered/Not Resolved]
